FAERS Safety Report 8297324-7 (Version None)
Quarter: 2012Q2

REPORT INFORMATION
  Report Type: 
  Country: None (occurrence: None)
  Receive Date: 20120419
  Receipt Date: 20111101
  Transmission Date: 20120825
  Serious: No
  Sender: FDA-Public Use
  Company Number: US-MYLANLABS-2011S1022844

PATIENT
  Age: 54 Year
  Sex: Male

DRUGS (1)
  1. TIZANIDINE HYDROCHLORIDE [Suspect]
     Indication: OESOPHAGEAL SPASM
     Route: 048
     Dates: start: 20110301

REACTIONS (3)
  - HEADACHE [None]
  - DRUG INEFFECTIVE [None]
  - OESOPHAGEAL SPASM [None]
